FAERS Safety Report 10141677 (Version 2)
Quarter: 2015Q1

REPORT INFORMATION
  Report Type: Other
  Country: US (occurrence: US)
  Receive Date: 20140429
  Receipt Date: 20150224
  Transmission Date: 20150720
  Serious: Yes (Hospitalization, Other)
  Sender: FDA-Public Use
  Company Number: US-GSKPPD-2014GSK041208

PATIENT
  Age: 35 Year
  Sex: Female

DRUGS (4)
  1. TICLID [Concomitant]
     Active Substance: TICLOPIDINE HYDROCHLORIDE
  2. AVANDIA [Suspect]
     Active Substance: ROSIGLITAZONE MALEATE
     Indication: DIABETES MELLITUS
     Dosage: AVANDIA WAS NOT LISTED AMONG THE PATIENTS RECORDS REVIEWED.
     Route: 048
  3. ASPIRIN. [Concomitant]
     Active Substance: ASPIRIN
  4. NITROPATCH [Concomitant]

REACTIONS (1)
  - Acute myocardial infarction [Recovered/Resolved]

NARRATIVE: CASE EVENT DATE: 20010111
